FAERS Safety Report 5200224-X (Version None)
Quarter: 2007Q1

REPORT INFORMATION
  Report Type: 
  Country: None (occurrence: None)
  Receive Date: 20070103
  Receipt Date: 20061219
  Transmission Date: 20070707
  Serious: Yes (Death, Other)
  Sender: FDA-Public Use
  Company Number: GXKR2006US08324

PATIENT
  Age: 39 Year
  Sex: Male

DRUGS (1)
  1. GLIPIZIDE [Suspect]
     Dosage: 10 MG, ONCE/SINGLE, ORAL
     Route: 048

REACTIONS (7)
  - ASTHENIA [None]
  - DRUG DISPENSING ERROR [None]
  - ENCEPHALOPATHY [None]
  - FATIGUE [None]
  - HYPOGLYCAEMIA [None]
  - LOSS OF CONSCIOUSNESS [None]
  - WRONG DRUG ADMINISTERED [None]
